FAERS Safety Report 8605126-4 (Version None)
Quarter: 2012Q3

REPORT INFORMATION
  Report Type: 
  Country: None (occurrence: None)
  Receive Date: 20120820
  Receipt Date: 20120808
  Transmission Date: 20120928
  Serious: Yes (Disabling, Other)
  Sender: FDA-Public Use
  Company Number: GB-BRISTOL-MYERS SQUIBB COMPANY-16843344

PATIENT
  Age: 75 Year
  Sex: Male

DRUGS (2)
  1. ATENOLOL + NIFEDIPINE [Concomitant]
     Indication: HYPERTENSION
     Dosage: COMBINATION OF ATENOLOL 50MG + NIFEDIPINE 20MG TAB, SINCE LONG TIME
  2. PRAVASTATIN SODIUM [Suspect]
     Indication: HYPERCHOLESTEROLAEMIA
     Dosage: TABS BEFORE 2.5 MONTHS

REACTIONS (3)
  - VISUAL IMPAIRMENT [None]
  - VISION BLURRED [None]
  - EYE DISORDER [None]
